FAERS Safety Report 5451160-5 (Version None)
Quarter: 2007Q3

REPORT INFORMATION
  Report Type: 
  Country: None (occurrence: None)
  Receive Date: 20070802
  Receipt Date: 20060720
  Transmission Date: 20080115
  Serious: Yes (Other)
  Sender: FDA-Public Use
  Company Number: 2006089430

PATIENT

DRUGS (1)
  1. CAMPTOSAR [Suspect]
     Indication: DRUG USE FOR UNKNOWN INDICATION

REACTIONS (2)
  - EXTRAVASATION [None]
  - VESSEL PUNCTURE SITE REACTION [None]
